FAERS Safety Report 10424427 (Version 2)
Quarter: 2014Q3

REPORT INFORMATION
  Report Type: Report from Study
  Country: US (occurrence: US)
  Receive Date: 20140902
  Receipt Date: 20140917
  Transmission Date: 20150326
  Serious: Yes (Death, Other)
  Sender: FDA-Public Use
  Company Number: US-GILEAD-2014-0113407

PATIENT
  Age: 55 Year
  Sex: Male

DRUGS (2)
  1. SOFOSBUVIR [Suspect]
     Active Substance: SOFOSBUVIR
     Indication: CHRONIC HEPATITIS C
     Dosage: 400 MG, UNK
     Route: 065
     Dates: start: 20140731
  2. OLYSIO [Concomitant]
     Active Substance: SIMEPREVIR

REACTIONS (4)
  - Sepsis [Fatal]
  - Respiratory arrest [Fatal]
  - Intestinal ischaemia [Fatal]
  - Shock [Fatal]
